FAERS Safety Report 5968223-8 (Version None)
Quarter: 2008Q4

REPORT INFORMATION
  Report Type: 
  Country: None (occurrence: None)
  Receive Date: 20081126
  Receipt Date: 20081119
  Transmission Date: 20090506
  Serious: Yes (Other)
  Sender: FDA-Public Use
  Company Number: B0546984A

PATIENT
  Age: 57 Year
  Sex: Male

DRUGS (2)
  1. KIVEXA [Suspect]
  2. SUSTIVA [Suspect]

REACTIONS (1)
  - PORTAL VEIN THROMBOSIS [None]
